FAERS Safety Report 21964722 (Version 1)
Quarter: 2023Q1

REPORT INFORMATION
  Report Type: Spontaneous
  Country: ES (occurrence: ES)
  Receive Date: 20230207
  Receipt Date: 20230207
  Transmission Date: 20230418
  Serious: Yes (Life-Threatening, Hospitalization)
  Sender: FDA-Public Use
  Company Number: None

PATIENT
  Age: 78 Year
  Sex: Female

DRUGS (4)
  1. LOSARTAN [Interacting]
     Active Substance: LOSARTAN
     Indication: Hypertension
     Dosage: LOSARTAN (7157A)
     Dates: start: 20200101, end: 20221027
  2. BISOPROLOL [Interacting]
     Active Substance: BISOPROLOL
     Indication: Product administration error
     Dosage: BISOPROLOL (2328A)
     Dates: start: 20221027, end: 20221027
  3. DOXAZOSIN MESYLATE [Interacting]
     Active Substance: DOXAZOSIN MESYLATE
     Indication: Product administration error
     Dosage: DOXAZOSINA (2387A)
     Dates: start: 20221027, end: 20221027
  4. ISOSORBIDE MONONITRATE [Interacting]
     Active Substance: ISOSORBIDE MONONITRATE
     Indication: Product administration error
     Dosage: ISOSORBIDA MONONITRATO (1794NI)
     Dates: start: 20221027, end: 20221027

REACTIONS (4)
  - Seizure [Recovered/Resolved]
  - Hypotension [Recovered/Resolved]
  - Product administration error [Recovered/Resolved]
  - Drug interaction [Unknown]

NARRATIVE: CASE EVENT DATE: 20221027
